FAERS Safety Report 12549161 (Version 1)
Quarter: 2016Q3

REPORT INFORMATION
  Report Type: Spontaneous
  Country: JP (occurrence: JP)
  Receive Date: 20160712
  Receipt Date: 20160712
  Transmission Date: 20161109
  Serious: Yes (Death, Hospitalization)
  Sender: FDA-Public Use
  Company Number: JP-MEDA-2016070033

PATIENT
  Age: 73 Year
  Sex: Female

DRUGS (5)
  1. FUROSEMIDE. [Concomitant]
     Active Substance: FUROSEMIDE
     Dates: start: 201603
  2. SAMSCA [Suspect]
     Active Substance: TOLVAPTAN
     Indication: CARDIAC FAILURE
     Route: 048
     Dates: start: 20160404, end: 20160405
  3. LUPRAC [Suspect]
     Active Substance: TORSEMIDE
     Route: 048
     Dates: start: 20160402, end: 20160406
  4. SAMSCA [Suspect]
     Active Substance: TOLVAPTAN
     Indication: CARDIAC FAILURE
     Route: 048
     Dates: start: 20160402, end: 20160403
  5. HANP [Suspect]
     Active Substance: CARPERITIDE
     Route: 041
     Dates: start: 20160328, end: 20160406

REACTIONS (3)
  - Cardiac failure [Fatal]
  - Drug effect incomplete [Unknown]
  - Hepatic function abnormal [Not Recovered/Not Resolved]

NARRATIVE: CASE EVENT DATE: 201604
